FAERS Safety Report 11496496 (Version 2)
Quarter: 2015Q4

REPORT INFORMATION
  Report Type: Spontaneous
  Country: US (occurrence: US)
  Receive Date: 20150911
  Receipt Date: 20151020
  Transmission Date: 20160304
  Serious: Yes (Hospitalization)
  Sender: FDA-Public Use
  Company Number: US-UNITED THERAPEUTICS-UNT-2015-010758

PATIENT
  Age: 70 Year
  Sex: Female
  Weight: 56.69 kg

DRUGS (2)
  1. REMODULIN [Suspect]
     Active Substance: TREPROSTINIL
     Indication: PULMONARY HYPERTENSION
     Dosage: 0.064 ?G/KG, CONTINUING
     Route: 058
     Dates: start: 20120320
  2. XARELTO [Concomitant]
     Active Substance: RIVAROXABAN
     Indication: PRODUCT USED FOR UNKNOWN INDICATION

REACTIONS (3)
  - Pulmonary arterial hypertension [Unknown]
  - Blood test abnormal [Unknown]
  - Right ventricular failure [Recovering/Resolving]

NARRATIVE: CASE EVENT DATE: 20150827
